FAERS Safety Report 10549549 (Version 3)
Quarter: 2014Q4

REPORT INFORMATION
  Report Type: Report from Study
  Country: GB (occurrence: GB)
  Receive Date: 20141028
  Receipt Date: 20141117
  Transmission Date: 20150529
  Serious: Yes (Life-Threatening, Hospitalization, Other)
  Sender: FDA-Public Use
  Company Number: GB-GLAXOSMITHKLINE-GB2014GSK007541

PATIENT
  Age: 66 Year
  Sex: Male
  Weight: 80.4 kg

DRUGS (20)
  1. DALTEPARIN [Suspect]
     Active Substance: DALTEPARIN
     Indication: PULMONARY EMBOLISM
     Dosage: 1500 UNK, QD
     Route: 058
     Dates: start: 20141007, end: 20141009
  2. BIOXTRA [Concomitant]
     Indication: MUCOSAL INFLAMMATION
     Dosage: 10 ML, PRN
     Route: 048
     Dates: start: 20140911
  3. DIAZEPAM. [Concomitant]
     Active Substance: DIAZEPAM
     Indication: ANXIETY
     Dosage: 5 MG, QD
     Route: 048
     Dates: end: 20141008
  4. PACLITAXEL. [Suspect]
     Active Substance: PACLITAXEL
     Indication: MALIGNANT MELANOMA
     Dosage: 96 MG, WE
     Route: 042
     Dates: start: 20140516, end: 20140929
  5. SENNA [Concomitant]
     Active Substance: SENNA LEAF\SENNOSIDES\SENNOSIDES A AND B
     Indication: CONSTIPATION
     Dosage: 7.5 MG, PRN
     Route: 048
  6. CETIRIZINE [Concomitant]
     Active Substance: CETIRIZINE HYDROCHLORIDE
     Dosage: 10 MG, PRN
     Route: 048
  7. PANTOPRAZOLE [Concomitant]
     Active Substance: PANTOPRAZOLE SODIUM
     Dosage: 80 MG, U
     Route: 042
     Dates: start: 20141010, end: 20141010
  8. METOCLOPRAMIDE. [Concomitant]
     Active Substance: METOCLOPRAMIDE
     Indication: NAUSEA
     Dosage: 10 MG, PRN
     Route: 048
     Dates: start: 20140516
  9. ORAMORPH SR SUSTAINED RELEASE [Concomitant]
     Active Substance: MORPHINE SULFATE
     Indication: PAIN
     Dosage: UNK, PRN
     Route: 048
  10. DIFFLAM MOUTH WASH [Concomitant]
     Indication: MUCOSAL INFLAMMATION
     Dosage: 10 ML, UNK
     Route: 048
     Dates: start: 20140717
  11. FENTANYL TRANSDERMAL SYSTEM [Concomitant]
     Active Substance: FENTANYL
     Indication: PAIN
     Dosage: 25 UG, U
     Route: 061
     Dates: start: 20140919, end: 20141009
  12. PANTOPRAZOLE [Concomitant]
     Active Substance: PANTOPRAZOLE SODIUM
     Dosage: 40 MG, BID
     Route: 042
     Dates: start: 20141011
  13. SIMVASTATIN. [Concomitant]
     Active Substance: SIMVASTATIN
     Indication: BLOOD CHOLESTEROL
     Dosage: 20 MG, QD
     Route: 048
     Dates: start: 20140620, end: 20141008
  14. LISINOPRIL. [Concomitant]
     Active Substance: LISINOPRIL
     Indication: HYPERTENSION
     Dosage: 20 MG, QD
     Route: 048
     Dates: end: 20141008
  15. BUSPIRONE [Concomitant]
     Active Substance: BUSPIRONE HYDROCHLORIDE
     Indication: ANXIETY
     Dosage: 20 MG, TID
     Route: 048
     Dates: end: 20141008
  16. OPIATES [Suspect]
     Active Substance: UNSPECIFIED INGREDIENT
  17. TRAZODONE [Concomitant]
     Active Substance: TRAZODONE HYDROCHLORIDE
     Indication: DEPRESSION
     Dosage: 200 MG, QD
     Route: 048
  18. FLUCONAZOLE. [Concomitant]
     Active Substance: FLUCONAZOLE
     Indication: ORAL CANDIDIASIS
     Dosage: 50 MG, QD
     Route: 048
     Dates: start: 20140911, end: 20141008
  19. PAZOPANIB [Suspect]
     Active Substance: PAZOPANIB
     Indication: MALIGNANT MELANOMA
     Dosage: 800 MG, QD
     Route: 048
     Dates: start: 20140516, end: 20141005
  20. DALTEPARIN [Suspect]
     Active Substance: DALTEPARIN
     Dosage: 500 UNK, UNK
     Route: 058
     Dates: start: 20141012

REACTIONS (3)
  - Pulmonary embolism [Recovered/Resolved with Sequelae]
  - Overdose [Recovered/Resolved]
  - Gastrointestinal haemorrhage [Recovered/Resolved]

NARRATIVE: CASE EVENT DATE: 20141006
